FAERS Safety Report 19804522 (Version 1)
Quarter: 2021Q3

REPORT INFORMATION
  Report Type: Spontaneous
  Country: GB (occurrence: GB)
  Receive Date: 20210908
  Receipt Date: 20210908
  Transmission Date: 20211014
  Serious: Yes (Other)
  Sender: FDA-Public Use
  Company Number: GB-PFIZER INC-202101111382

PATIENT
  Age: 38 Year
  Sex: Female
  Weight: 70.76 kg

DRUGS (4)
  1. MISOPROSTOL. [Suspect]
     Active Substance: MISOPROSTOL
     Indication: ABORTION INDUCED
     Dosage: 2 DF, 3X/DAY (1%)
     Route: 067
     Dates: start: 20210508, end: 20210508
  2. FOSTAIR [Concomitant]
     Active Substance: BECLOMETHASONE\FORMOTEROL
     Indication: ILL-DEFINED DISORDER
     Dosage: UNK
  3. MONTELUKAST [Concomitant]
     Active Substance: MONTELUKAST SODIUM
     Indication: ILL-DEFINED DISORDER
     Dosage: UNK
  4. SALBUTAMOL BASE [Concomitant]
     Indication: ILL-DEFINED DISORDER
     Dosage: UNK

REACTIONS (3)
  - Uterine haemorrhage [Not Recovered/Not Resolved]
  - Endometrial hyperplasia [Not Recovered/Not Resolved]
  - Off label use [Unknown]

NARRATIVE: CASE EVENT DATE: 20210508
